FAERS Safety Report 14467295 (Version 1)
Quarter: 2018Q1

REPORT INFORMATION
  Report Type: Spontaneous
  Country: US (occurrence: US)
  Receive Date: 20180131
  Receipt Date: 20180131
  Transmission Date: 20180509
  Serious: Yes (Hospitalization)
  Sender: FDA-Public Use
  Company Number: US-LPDUSPRD-20180084

PATIENT
  Age: 68 Year
  Sex: Male

DRUGS (3)
  1. CISPLATIN. [Suspect]
     Active Substance: CISPLATIN
     Dosage: UNKNOWN
     Route: 065
  2. GEMCITABINE [Suspect]
     Active Substance: GEMCITABINE\GEMCITABINE HYDROCHLORIDE
     Dosage: UNKNOWN
     Route: 065
  3. RADIATION [Concomitant]
     Active Substance: RADIATION THERAPY
     Dosage: UNKNOWN
     Route: 065

REACTIONS (1)
  - Organising pneumonia [Recovering/Resolving]
